FAERS Safety Report 7305753-0 (Version None)
Quarter: 2011Q1

REPORT INFORMATION
  Report Type: 
  Country: None (occurrence: None)
  Receive Date: 20110222
  Receipt Date: 20110215
  Transmission Date: 20110831
  Serious: Yes (Hospitalization)
  Sender: FDA-Public Use
  Company Number: B0697790A

PATIENT
  Sex: Female
  Weight: 83.4 kg

DRUGS (6)
  1. LANSOPRAZOLE [Concomitant]
     Indication: PRODUCT USED FOR UNKNOWN INDICATION
     Route: 065
  2. XANAX [Concomitant]
     Indication: PRODUCT USED FOR UNKNOWN INDICATION
     Route: 065
  3. TYVERB [Suspect]
     Indication: BREAST CANCER METASTATIC
     Route: 048
     Dates: start: 20101125, end: 20110201
  4. XELODA [Concomitant]
     Indication: BREAST CANCER METASTATIC
     Dosage: 4000MG PER DAY
     Route: 048
     Dates: start: 20101125, end: 20101207
  5. PROZAC [Concomitant]
     Indication: PRODUCT USED FOR UNKNOWN INDICATION
     Route: 065
  6. PARAMOL [Concomitant]
     Indication: PRODUCT USED FOR UNKNOWN INDICATION
     Route: 065

REACTIONS (8)
  - NAUSEA [None]
  - DECREASED APPETITE [None]
  - ATAXIA [None]
  - DYSPHAGIA [None]
  - DIARRHOEA [None]
  - MOUTH ULCERATION [None]
  - MUCOSAL INFLAMMATION [None]
  - VOMITING [None]
